FAERS Safety Report 8103927-2 (Version None)
Quarter: 2012Q1

REPORT INFORMATION
  Report Type: 
  Country: None (occurrence: None)
  Receive Date: 20120201
  Receipt Date: 20120123
  Transmission Date: 20120608
  Serious: Yes (Hospitalization)
  Sender: FDA-Public Use
  Company Number: US-BAYER-201025005NA

PATIENT
  Age: 33 Year
  Sex: Female
  Weight: 79.365 kg

DRUGS (12)
  1. AZITHROMYCIN [Concomitant]
     Dosage: AS NEEDED
     Dates: start: 20061201, end: 20110201
  2. YASMIN [Suspect]
     Dosage: UNK
     Dates: start: 20080401, end: 20080701
  3. CYCLOBENZAPRINE [Concomitant]
     Dosage: UNK
     Dates: start: 20070701, end: 20100401
  4. OXYCODONE HCL [Concomitant]
     Dosage: UNK
     Dates: start: 20071101, end: 20110201
  5. LEXAPRO [Concomitant]
     Dosage: UNK
     Dates: start: 20071101, end: 20090301
  6. YASMIN [Suspect]
     Indication: PRODUCT USED FOR UNKNOWN INDICATION
     Dosage: UNK
     Route: 048
     Dates: start: 20050301, end: 20060701
  7. SKELAXIN [Concomitant]
     Dosage: UNK
     Dates: start: 20080401, end: 20081201
  8. HYDROMORPHONE HCL [Concomitant]
     Dosage: UNK
     Dates: start: 20080625, end: 20080625
  9. HYDROCODONE [HYDROCODONE] [Concomitant]
     Dosage: UNK
     Dates: start: 20070701, end: 20110401
  10. IBUPROFEN [Concomitant]
     Dosage: UNK
     Dates: start: 20050801, end: 20081201
  11. YASMIN [Suspect]
     Dosage: UNK
     Dates: start: 20070301, end: 20071101
  12. GABAPENTIN [Concomitant]
     Dosage: UNK
     Dates: start: 20080701, end: 20081201

REACTIONS (4)
  - PULMONARY EMBOLISM [None]
  - DEEP VEIN THROMBOSIS [None]
  - ANXIETY [None]
  - DEPRESSION [None]
